FAERS Safety Report 9467563 (Version 1)
Quarter: 2013Q3

REPORT INFORMATION
  Report Type: Report from Study
  Country: FR (occurrence: FR)
  Receive Date: 20130821
  Receipt Date: 20130821
  Transmission Date: 20140515
  Serious: Yes (Life-Threatening, Hospitalization)
  Sender: FDA-Public Use
  Company Number: FR-ROCHE-1264103

PATIENT
  Age: 59 Year
  Sex: Female
  Weight: 69 kg

DRUGS (28)
  1. RITUXIMAB [Suspect]
     Indication: ACUTE LYMPHOCYTIC LEUKAEMIA
     Dosage: CYCLE 1 DAY 1
     Route: 042
     Dates: start: 20090520
  2. RITUXIMAB [Suspect]
     Dosage: CYCLE 1 DAY 7
     Route: 042
     Dates: start: 20090527
  3. METHOTREXATE [Concomitant]
     Dosage: CYCLE 1 DAY 1
     Route: 037
     Dates: start: 20090520
  4. METHOTREXATE [Concomitant]
     Dosage: CYCLE 1 DAY 8
     Route: 037
     Dates: start: 20090528
  5. CYTARABINE [Concomitant]
     Dosage: CYCLE 1 DAY 1
     Route: 037
     Dates: start: 20090520
  6. PREDNISONE [Concomitant]
     Dosage: CYCLE 1 DAY 1
     Route: 037
     Dates: start: 20090520
  7. PREDNISONE [Concomitant]
     Dosage: CYCLE 1 DAY 8
     Route: 037
     Dates: start: 20090528
  8. VINCRISTINE [Concomitant]
     Dosage: CYCLE 1 DAY 1
     Route: 042
     Dates: start: 20090520
  9. VINCRISTINE [Concomitant]
     Dosage: CYCLE 1 DAY 8
     Route: 042
     Dates: start: 20090528
  10. VINCRISTINE [Concomitant]
     Dosage: CYCLE 1 DAY 15
     Route: 042
     Dates: start: 20090604
  11. VINCRISTINE [Concomitant]
     Dosage: CYCLE 1 DAY 22
     Route: 042
  12. DAUNORUBICIN [Concomitant]
     Dosage: CYCLE 1 DAY 1
     Route: 042
     Dates: start: 20090520
  13. DAUNORUBICIN [Concomitant]
     Dosage: CYCLE 1 DAY 15
     Route: 042
     Dates: start: 20090604
  14. DAUNORUBICIN [Concomitant]
     Dosage: CYCLE 1 DAY 16
     Route: 042
     Dates: start: 20090605
  15. ASPARAGINASE [Concomitant]
     Dosage: CYCLE 1 DAY 1
     Route: 042
     Dates: start: 20090520
  16. ASPARAGINASE [Concomitant]
     Dosage: CYCLE 1 DAY 8
     Route: 042
     Dates: start: 20090528
  17. ASPARAGINASE [Concomitant]
     Dosage: CYCLE 1 DAY 20
     Route: 042
  18. ASPARAGINASE [Concomitant]
     Dosage: CYCLE 1 DAY 22
     Route: 042
  19. CYCLOPHOSPHAMIDE [Concomitant]
     Dosage: CYCLE 1 DAY 1
     Route: 042
     Dates: start: 20090520
  20. CYCLOPHOSPHAMIDE [Concomitant]
     Dosage: CYCLE 1 DAY 15
     Route: 042
     Dates: start: 20090604
  21. CYCLOPHOSPHAMIDE [Concomitant]
     Dosage: CYCLE 1 DAY 16
     Route: 042
     Dates: start: 20090605
  22. INIPOMP [Concomitant]
     Route: 065
  23. JUSTOR [Concomitant]
     Route: 065
  24. TENORMINE [Concomitant]
     Route: 065
  25. KARDEGIC [Concomitant]
     Route: 065
  26. STILNOX [Concomitant]
     Route: 065
  27. MAGNE B6 (FRANCE) [Concomitant]
     Route: 065
  28. VASTAREL [Concomitant]
     Route: 065

REACTIONS (1)
  - Acute respiratory distress syndrome [Recovered/Resolved]
